FAERS Safety Report 8014563-0 (Version None)
Quarter: 2011Q4

REPORT INFORMATION
  Report Type: 
  Country: None (occurrence: None)
  Receive Date: 20111229
  Receipt Date: 20111219
  Transmission Date: 20120403
  Serious: Yes (Death)
  Sender: FDA-Public Use
  Company Number: US-PFIZER INC-2011310516

PATIENT
  Age: 54 Year
  Sex: Female

DRUGS (7)
  1. ACETAMINOPHEN AND HYDROCODONE BITARTRATE [Suspect]
     Dosage: UNK
     Route: 048
  2. ACETAMINOPHEN AND OXYCODONE HCL [Suspect]
     Dosage: UNK
     Route: 048
  3. FENTANYL [Suspect]
     Dosage: UNK
     Route: 048
  4. PREGABALIN [Suspect]
     Dosage: UNK
     Route: 048
  5. DULOXETINE HYDROCHLORIDE [Suspect]
     Dosage: UNK
     Route: 048
  6. QUETIAPINE FUMARATE [Suspect]
     Dosage: UNK
     Route: 048
  7. CLONAZEPAM [Suspect]
     Dosage: UNK
     Route: 048

REACTIONS (3)
  - CARDIAC ARREST [None]
  - RESPIRATORY ARREST [None]
  - COMPLETED SUICIDE [None]
